FAERS Safety Report 6907279-2 (Version None)
Quarter: 2010Q3

REPORT INFORMATION
  Report Type: 
  Country: None (occurrence: None)
  Receive Date: 20100730
  Receipt Date: 20090818
  Transmission Date: 20110219
  Serious: Yes (Hospitalization)
  Sender: FDA-Public Use
  Company Number: 8050572

PATIENT
  Sex: Female
  Weight: 150 kg

DRUGS (3)
  1. CERTOLIZUMAB PEGOL (UCB, INC.) [Suspect]
     Indication: CROHN'S DISEASE
     Dosage: SUBCUTANEOUS
     Route: 058
     Dates: start: 20090218
  2. CIPRO [Concomitant]
  3. PREDNISONE [Concomitant]

REACTIONS (10)
  - BLOOD PRESSURE DECREASED [None]
  - CONDITION AGGRAVATED [None]
  - CROHN'S DISEASE [None]
  - DEHYDRATION [None]
  - DIZZINESS [None]
  - DYSPNOEA [None]
  - EAR INFECTION [None]
  - FATIGUE [None]
  - HEART RATE INCREASED [None]
  - PYREXIA [None]
